FAERS Safety Report 9386217 (Version 17)
Quarter: 2015Q3

REPORT INFORMATION
  Report Type: Report from Study
  Country: CA (occurrence: CA)
  Receive Date: 20130708
  Receipt Date: 20150928
  Transmission Date: 20151125
  Serious: Yes (Other)
  Sender: FDA-Public Use
  Company Number: CA-ROCHE-1139207

PATIENT
  Age: 50 Year
  Sex: Female
  Weight: 53 kg

DRUGS (10)
  1. ACTEMRA [Suspect]
     Active Substance: TOCILIZUMAB
     Route: 042
     Dates: start: 20140530
  2. ACTEMRA [Suspect]
     Active Substance: TOCILIZUMAB
     Indication: RHEUMATOID ARTHRITIS
     Route: 042
     Dates: start: 20120828
  3. ACTEMRA [Suspect]
     Active Substance: TOCILIZUMAB
     Route: 042
     Dates: start: 20131206
  4. ACTEMRA [Suspect]
     Active Substance: TOCILIZUMAB
     Route: 042
     Dates: start: 20150116
  5. ACTEMRA [Suspect]
     Active Substance: TOCILIZUMAB
     Route: 042
     Dates: start: 20140103
  6. ACTEMRA [Suspect]
     Active Substance: TOCILIZUMAB
     Route: 042
     Dates: start: 20140307
  7. ACTEMRA [Suspect]
     Active Substance: TOCILIZUMAB
     Route: 042
     Dates: start: 20140627
  8. ACTEMRA [Suspect]
     Active Substance: TOCILIZUMAB
     Route: 042
     Dates: start: 20150702
  9. ACTEMRA [Suspect]
     Active Substance: TOCILIZUMAB
     Route: 042
     Dates: start: 20141217
  10. MELOXICAM. [Concomitant]
     Active Substance: MELOXICAM
     Indication: RHEUMATOID ARTHRITIS

REACTIONS (35)
  - Asthenia [Not Recovered/Not Resolved]
  - Feeling abnormal [Not Recovered/Not Resolved]
  - Influenza [Recovered/Resolved]
  - Musculoskeletal pain [Not Recovered/Not Resolved]
  - Stress [Unknown]
  - Infected cyst [Recovered/Resolved]
  - Productive cough [Not Recovered/Not Resolved]
  - Drug ineffective [Unknown]
  - Influenza [Recovered/Resolved]
  - Post procedural infection [Not Recovered/Not Resolved]
  - Infusion related reaction [Recovered/Resolved]
  - Joint swelling [Not Recovered/Not Resolved]
  - Joint range of motion decreased [Not Recovered/Not Resolved]
  - Stress [Unknown]
  - Weight increased [Unknown]
  - Synovial cyst [Unknown]
  - Oropharyngeal pain [Not Recovered/Not Resolved]
  - Pyrexia [Not Recovered/Not Resolved]
  - Tooth disorder [Unknown]
  - Joint dislocation [Not Recovered/Not Resolved]
  - Burning sensation [Recovered/Resolved]
  - Exercise tolerance decreased [Not Recovered/Not Resolved]
  - Rheumatoid arthritis [Unknown]
  - Laceration [Recovering/Resolving]
  - Paraesthesia [Recovered/Resolved]
  - Fatigue [Not Recovered/Not Resolved]
  - Laceration [Recovered/Resolved]
  - Tremor [Unknown]
  - Arthralgia [Recovered/Resolved]
  - Arthritis [Recovering/Resolving]
  - Headache [Recovered/Resolved]
  - Nasopharyngitis [Not Recovered/Not Resolved]
  - Candida infection [Not Recovered/Not Resolved]
  - Tooth fracture [Unknown]
  - Respiratory tract congestion [Recovered/Resolved]

NARRATIVE: CASE EVENT DATE: 201209
